FAERS Safety Report 8794128 (Version 2)
Quarter: 2013Q3

REPORT INFORMATION
  Report Type: Report from Study
  Country: US (occurrence: US)
  Receive Date: 20120917
  Receipt Date: 20130807
  Transmission Date: 20140515
  Serious: Yes (Hospitalization, Other)
  Sender: FDA-Public Use
  Company Number: PHEH2012US017864

PATIENT
  Age: 71 Year
  Sex: Male

DRUGS (1)
  1. ZORTRESS [Suspect]
     Indication: RENAL FAILURE CHRONIC
     Dosage: 0.75 MG, BID (2 AM AND 1 PM)
     Route: 048
     Dates: start: 20120905

REACTIONS (4)
  - Cardiac enzymes increased [Unknown]
  - Stent malfunction [Unknown]
  - Hypoglycaemia [Unknown]
  - Diabetes mellitus [Unknown]
